FAERS Safety Report 4966935-6 (Version None)
Quarter: 2006Q2

REPORT INFORMATION
  Report Type: 
  Country: None (occurrence: None)
  Receive Date: 20060407
  Receipt Date: 20060404
  Transmission Date: 20061013
  Serious: Yes (Hospitalization)
  Sender: FDA-Public Use
  Company Number: US-MERCK-0604USA00465

PATIENT
  Age: 77 Year
  Sex: Female

DRUGS (4)
  1. FOSAMAX [Suspect]
     Indication: OSTEOPOROSIS
     Route: 048
     Dates: start: 19960101
  2. HYZAAR [Concomitant]
     Route: 048
  3. TOPROL-XL [Concomitant]
     Route: 065
  4. ZETIA [Concomitant]
     Route: 048

REACTIONS (1)
  - CHEST PAIN [None]
